FAERS Safety Report 21564952 (Version 1)
Quarter: 2022Q4

REPORT INFORMATION
  Report Type: Spontaneous
  Country: US (occurrence: None)
  Receive Date: 20221108
  Receipt Date: 20221108
  Transmission Date: 20230112
  Serious: Yes (Other)
  Sender: FDA-Public Use
  Company Number: 2022A364327

PATIENT
  Age: 75 Year
  Sex: Female

DRUGS (2)
  1. TAGRISSO [Suspect]
     Active Substance: OSIMERTINIB
     Indication: Lung neoplasm malignant
     Route: 048
     Dates: start: 202204
  2. TAGRISSO [Suspect]
     Active Substance: OSIMERTINIB
     Indication: Lung neoplasm malignant
     Route: 048

REACTIONS (8)
  - Metastases to central nervous system [Recovering/Resolving]
  - Furuncle [Not Recovered/Not Resolved]
  - Feeling abnormal [Unknown]
  - Skin sensitisation [Unknown]
  - Skin haemorrhage [Unknown]
  - Rash [Unknown]
  - Product dose omission issue [Not Recovered/Not Resolved]
  - Intentional product misuse [Recovered/Resolved]

NARRATIVE: CASE EVENT DATE: 20220101
